FAERS Safety Report 9312975 (Version 1)
Quarter: 2013Q2

REPORT INFORMATION
  Report Type: Spontaneous
  Country: US (occurrence: US)
  Receive Date: 20130528
  Receipt Date: 20130528
  Transmission Date: 20140414
  Serious: No
  Sender: FDA-Public Use
  Company Number: US-ABBOTT-13P-163-1064780-00

PATIENT
  Age: 86 Year
  Sex: Male
  Weight: 77.18 kg

DRUGS (2)
  1. ANDROGEL [Suspect]
     Indication: BLOOD TESTOSTERONE DECREASED
     Route: 061
     Dates: start: 201302, end: 201302
  2. ANDROGEL [Suspect]
     Route: 061
     Dates: start: 201303, end: 201303

REACTIONS (3)
  - Rash [Recovered/Resolved]
  - Rash [Not Recovered/Not Resolved]
  - Drug intolerance [Unknown]
